FAERS Safety Report 11539081 (Version 3)
Quarter: 2015Q4

REPORT INFORMATION
  Report Type: Report from Study
  Country: CA (occurrence: CA)
  Receive Date: 20150923
  Receipt Date: 20151023
  Transmission Date: 20160304
  Serious: Yes (Other)
  Sender: FDA-Public Use
  Company Number: CA-ROCHE-1474649

PATIENT
  Age: 82 Year
  Sex: Male
  Weight: 79.9 kg

DRUGS (14)
  1. RITUXAN [Suspect]
     Active Substance: RITUXIMAB
     Indication: PEMPHIGOID
     Dosage: DATE OF LAST DOSE :15/MAY/2014
     Route: 042
     Dates: start: 20140422
  2. REFRESH PLUS [Concomitant]
     Active Substance: CARBOXYMETHYLCELLULOSE SODIUM
  3. ANDROCUR [Concomitant]
     Active Substance: CYPROTERONE ACETATE
     Indication: PROSTATE CANCER
  4. LOTEMAX [Concomitant]
     Active Substance: LOTEPREDNOL ETABONATE
     Dosage: EYE GTTS
     Route: 065
  5. CYCLOPHOSPHAMIDE. [Suspect]
     Active Substance: CYCLOPHOSPHAMIDE
     Indication: PRODUCT USED FOR UNKNOWN INDICATION
     Route: 065
  6. IVIG [Concomitant]
     Active Substance: HUMAN IMMUNOGLOBULIN G
     Dosage: EVERY MONTH X DAYS
     Route: 065
  7. PREDNISONE. [Suspect]
     Active Substance: PREDNISONE
     Indication: PRODUCT USED FOR UNKNOWN INDICATION
     Route: 065
  8. RESTASIS [Concomitant]
     Active Substance: CYCLOSPORINE
  9. ACETAMINOPHEN. [Concomitant]
     Active Substance: ACETAMINOPHEN
     Indication: PREMEDICATION
     Route: 048
     Dates: start: 20140422
  10. VITAMIN C [Concomitant]
     Active Substance: ASCORBIC ACID
  11. DIPHENHYDRAMINE HCL [Concomitant]
     Active Substance: DIPHENHYDRAMINE HYDROCHLORIDE
     Indication: PREMEDICATION
     Route: 048
     Dates: start: 20140422
  12. IMURAN [Concomitant]
     Active Substance: AZATHIOPRINE
  13. FENTANYL. [Concomitant]
     Active Substance: FENTANYL
     Indication: BACK PAIN
     Route: 065
  14. METHYLPREDNISOLONE. [Concomitant]
     Active Substance: METHYLPREDNISOLONE
     Indication: PREMEDICATION
     Route: 042
     Dates: start: 20140422

REACTIONS (10)
  - Pollakiuria [Unknown]
  - Scar [Recovered/Resolved]
  - Off label use [Unknown]
  - Blood pressure diastolic increased [Unknown]
  - Weight decreased [Unknown]
  - Infusion related reaction [Unknown]
  - Compression fracture [Unknown]
  - Pemphigoid [Unknown]
  - Ocular pemphigoid [Unknown]
  - Blindness unilateral [Unknown]

NARRATIVE: CASE EVENT DATE: 20141121
